FAERS Safety Report 10158291 (Version 3)
Quarter: 2014Q3

REPORT INFORMATION
  Report Type: Report from Study
  Country: FR (occurrence: FR)
  Receive Date: 20140507
  Receipt Date: 20140731
  Transmission Date: 20150326
  Serious: Yes (Other)
  Sender: FDA-Public Use
  Company Number: PHHY2014FR055178

PATIENT
  Age: 33 Year
  Sex: Male
  Weight: 108 kg

DRUGS (7)
  1. NIZORAL [Concomitant]
     Active Substance: KETOCONAZOLE
     Dosage: 200 MG, QID
     Route: 048
     Dates: start: 20130715, end: 20140219
  2. ACTISKENAN [Concomitant]
     Active Substance: MORPHINE SULFATE
     Indication: INTERVERTEBRAL DISC PROTRUSION
     Dosage: 10 MG, ON DEMAND
     Route: 048
     Dates: start: 20140220
  3. TILDIEM [Concomitant]
     Active Substance: DILTIAZEM HYDROCHLORIDE
     Indication: HYPERTENSION
     Dosage: 200 MG, QD, ONCE DAILY
     Route: 048
     Dates: start: 20140220, end: 20140220
  4. SKENAN [Concomitant]
     Active Substance: MORPHINE SULFATE
     Indication: INTERVERTEBRAL DISC PROTRUSION
     Dosage: 30 MG, QD
     Route: 048
     Dates: start: 20140220
  5. EFFEXOR [Concomitant]
     Active Substance: VENLAFAXINE HYDROCHLORIDE
     Indication: DEPRESSION
     Dosage: 37.5 MG, QD
     Route: 048
     Dates: start: 20140220
  6. NIZORAL [Concomitant]
     Active Substance: KETOCONAZOLE
     Indication: PITUITARY-DEPENDENT CUSHING^S SYNDROME
     Dosage: 200 MG, BID
     Route: 048
     Dates: start: 20130604, end: 20130714
  7. SOM230 [Suspect]
     Active Substance: PASIREOTIDE
     Indication: PITUITARY-DEPENDENT CUSHING^S SYNDROME
     Dosage: 0.6 MG, UNK
     Route: 058
     Dates: start: 20140220, end: 20140401

REACTIONS (1)
  - Diabetes mellitus [Unknown]

NARRATIVE: CASE EVENT DATE: 20140310
